FAERS Safety Report 9093844 (Version 1)
Quarter: 2013Q1

REPORT INFORMATION
  Report Type: Spontaneous
  Country: US (occurrence: None)
  Receive Date: 20130122
  Receipt Date: 20130122
  Transmission Date: 20140127
  Serious: Yes (Hospitalization, Other)
  Sender: FDA-Public Use
  Company Number: TPA2013A00847

PATIENT
  Age: 85 Year
  Sex: Female

DRUGS (2)
  1. ACTOS (PIOGLITAZONE HYDROCHLORIDE) [Suspect]
     Indication: TYPE 2 DIABETES MELLITUS
     Dates: start: 20060615, end: 20100702
  2. AMARYL (GLIMEPIRIDE) [Concomitant]

REACTIONS (1)
  - Arrhythmia [None]
